FAERS Safety Report 11329236 (Version 2)
Quarter: 2015Q3

REPORT INFORMATION
  Report Type: Spontaneous
  Country: JP (occurrence: JP)
  Receive Date: 20150803
  Receipt Date: 20150810
  Transmission Date: 20151125
  Serious: No
  Sender: FDA-Public Use
  Company Number: JP-MERCK-1507JPN013266

PATIENT
  Sex: Female
  Weight: 2.6 kg

DRUGS (4)
  1. DEXAMETHASONE. [Suspect]
     Active Substance: DEXAMETHASONE
     Indication: FOETAL ARRHYTHMIA
     Dosage: 4 MG, QD, 4 WEEKS
     Route: 048
  2. DEXAMETHASONE. [Suspect]
     Active Substance: DEXAMETHASONE
     Indication: FOETAL ARRHYTHMIA
     Dosage: 2.5 MG, DAILY 3WEEKS
     Route: 048
  3. PREDNISOLONE. [Concomitant]
     Active Substance: PREDNISOLONE
     Dosage: 15 MG,QD,  DOSE REDUCED
     Route: 064
  4. PREDNISOLONE. [Concomitant]
     Active Substance: PREDNISOLONE
     Dosage: 10 MG, QD,CONTINUED UNTIL DELIVERY
     Route: 064

REACTIONS (1)
  - Foetal growth restriction [Recovered/Resolved]
